FAERS Safety Report 10191944 (Version 1)
Quarter: 2014Q2

REPORT INFORMATION
  Report Type: Spontaneous
  Country: US (occurrence: US)
  Receive Date: 20140523
  Receipt Date: 20140523
  Transmission Date: 20141212
  Serious: No
  Sender: FDA-Public Use
  Company Number: US-PFIZER INC-2014142112

PATIENT
  Age: 81 Year
  Sex: Female
  Weight: 87.1 kg

DRUGS (2)
  1. LYRICA [Suspect]
     Indication: PARAESTHESIA
     Dosage: 200 MG, UNK
  2. LYRICA [Suspect]
     Indication: PAIN
     Dosage: 50 MG, DAILY

REACTIONS (3)
  - Somnolence [Unknown]
  - Constipation [Unknown]
  - Pain in extremity [Unknown]
